FAERS Safety Report 13550826 (Version 2)
Quarter: 2017Q2

REPORT INFORMATION
  Report Type: Spontaneous
  Country: DE (occurrence: DE)
  Receive Date: 20170516
  Receipt Date: 20170516
  Transmission Date: 20170830
  Serious: Yes (Other)
  Sender: FDA-Public Use
  Company Number: GXKR2017DE002723

PATIENT

DRUGS (3)
  1. LEVETIRACETAM. [Suspect]
     Active Substance: LEVETIRACETAM
     Indication: EPILEPSY
     Dosage: 500 MG, BID, 0.-36.2 GW
     Route: 064
     Dates: start: 20160508, end: 20170117
  2. CARBAMAZEPINE. [Suspect]
     Active Substance: CARBAMAZEPINE
     Indication: EPILEPSY
     Dosage: 500 MG, BID, 0.-36.2 GW
     Route: 064
     Dates: start: 20160508, end: 20170117
  3. ZONEGRAN [Suspect]
     Active Substance: ZONISAMIDE
     Indication: EPILEPSY
     Dosage: 200 MG, QD, 0.-36.2 GW
     Route: 064
     Dates: start: 20160508, end: 20170117

REACTIONS (8)
  - Pulmonary hypertension [Recovered/Resolved]
  - Tachyarrhythmia [Not Recovered/Not Resolved]
  - Small for dates baby [Unknown]
  - Respiratory disorder neonatal [Recovered/Resolved]
  - Neonatal hypotension [Recovered/Resolved]
  - Neonatal pneumonia [Recovered/Resolved]
  - Disseminated intravascular coagulation [Recovered/Resolved]
  - Premature baby [Recovered/Resolved]

NARRATIVE: CASE EVENT DATE: 20170117
